FAERS Safety Report 13846007 (Version 1)
Quarter: 2017Q3

REPORT INFORMATION
  Report Type: Spontaneous
  Country: US (occurrence: US)
  Receive Date: 20170808
  Receipt Date: 20170808
  Transmission Date: 20171127
  Serious: No
  Sender: FDA-Public Use
  Company Number: US-ROCHE-608600

PATIENT
  Age: 92 Year
  Sex: Female

DRUGS (2)
  1. BONIVA [Suspect]
     Active Substance: IBANDRONATE SODIUM
     Indication: OSTEOPOROSIS
     Route: 065
  2. BONIVA [Suspect]
     Active Substance: IBANDRONATE SODIUM
     Route: 065

REACTIONS (3)
  - Pulmonary oedema [Recovering/Resolving]
  - Peripheral swelling [Not Recovered/Not Resolved]
  - Atypical pneumonia [Recovering/Resolving]

NARRATIVE: CASE EVENT DATE: 200812
